FAERS Safety Report 9789344 (Version 1)
Quarter: 2013Q4

REPORT INFORMATION
  Report Type: Spontaneous
  Country: GB (occurrence: GB)
  Receive Date: 20131231
  Receipt Date: 20131231
  Transmission Date: 20140711
  Serious: Yes (Hospitalization, Other)
  Sender: FDA-Public Use
  Company Number: GB-WATSON-2013-23651

PATIENT
  Age: 60 Year
  Sex: Male

DRUGS (2)
  1. LOSARTAN (UNKNOWN) [Suspect]
     Indication: HYPERTENSION
     Dosage: 50 MG, UNKNOWN
     Route: 048
     Dates: start: 201310, end: 201311
  2. WARFARIN [Concomitant]
     Indication: PRODUCT USED FOR UNKNOWN INDICATION
     Dosage: UNK
     Route: 065

REACTIONS (1)
  - Dyspnoea [Recovering/Resolving]
